FAERS Safety Report 19203963 (Version 1)
Quarter: 2021Q2

REPORT INFORMATION
  Report Type: Other
  Country: CA (occurrence: CA)
  Receive Date: 20210503
  Receipt Date: 20210503
  Transmission Date: 20210717
  Serious: Yes (Other)
  Sender: FDA-Public Use
  Company Number: CA-APOTEX-2021AP010508

PATIENT
  Age: 48 Year
  Sex: Male
  Weight: 96 kg

DRUGS (2)
  1. MYCOPHENOLATE MOFETIL. [Suspect]
     Active Substance: MYCOPHENOLATE MOFETIL
     Indication: IDIOPATHIC PULMONARY FIBROSIS
     Dosage: 1000 MILLIGRAM, BID
     Route: 048
  2. RITUXIMAB. [Suspect]
     Active Substance: RITUXIMAB
     Indication: IDIOPATHIC PULMONARY FIBROSIS
     Dosage: UNK
     Route: 065

REACTIONS (4)
  - Hepatic atrophy [Unknown]
  - Liver disorder [Unknown]
  - Off label use [Unknown]
  - Intentional product use issue [Unknown]
